FAERS Safety Report 9764628 (Version 2)
Quarter: 2014Q2

REPORT INFORMATION
  Report Type: Spontaneous
  Country: US (occurrence: US)
  Receive Date: 20131217
  Receipt Date: 20140421
  Transmission Date: 20141212
  Serious: Yes (Other)
  Sender: FDA-Public Use
  Company Number: US-SA-2013SA130345

PATIENT
  Age: 69 Year
  Sex: Male
  Weight: 122 kg

DRUGS (11)
  1. PLAVIX [Suspect]
     Indication: PRODUCT USED FOR UNKNOWN INDICATION
     Route: 048
     Dates: start: 199904
  2. ASPIRIN [Suspect]
     Route: 065
  3. COREG [Concomitant]
  4. ATACAND [Concomitant]
  5. NORVASC [Concomitant]
  6. MAXZIDE [Concomitant]
  7. ALLOPURINOL [Concomitant]
  8. PRILOSEC [Concomitant]
  9. VITAMIN B12 [Concomitant]
  10. LANTUS [Concomitant]
  11. NOVOLOG [Concomitant]

REACTIONS (4)
  - Angiopathy [Unknown]
  - Ankle fracture [Unknown]
  - Contusion [Unknown]
  - Bleeding time prolonged [Unknown]
